FAERS Safety Report 7723876-9 (Version None)
Quarter: 2011Q3

REPORT INFORMATION
  Report Type: 
  Country: None (occurrence: None)
  Receive Date: 20110829
  Receipt Date: 20110817
  Transmission Date: 20111222
  Serious: Yes (Other)
  Sender: FDA-Public Use
  Company Number: JPI-P-015619

PATIENT
  Age: 60 Year
  Sex: Female

DRUGS (5)
  1. VALACYCLOVIR HYDROCHLORIDE [Concomitant]
  2. AMPHETAMINE, DEXTROAPHETAMINE MIXED SALTS [Concomitant]
  3. LORAZEPAM [Concomitant]
  4. XYREM [Suspect]
     Indication: FIBROMYALGIA
     Dosage: 4.5 GM (2.25 GM, 2 IN 1 D), ORAL; ORAL; 6 GM (3 GM 2 IN 1 D), ORAL
     Route: 048
     Dates: start: 20110525
  5. XYREM [Suspect]
     Indication: FIBROMYALGIA
     Dosage: 4.5 GM (2.25 GM, 2 IN 1 D), ORAL; ORAL; 6 GM (3 GM 2 IN 1 D), ORAL
     Route: 048
     Dates: start: 20050505

REACTIONS (7)
  - TOOTHACHE [None]
  - SEBORRHOEA [None]
  - INTERVERTEBRAL DISC PROTRUSION [None]
  - DRY SKIN [None]
  - PRURITUS [None]
  - SPINAL COLUMN STENOSIS [None]
  - PAIN IN EXTREMITY [None]
